FAERS Safety Report 4348542-1 (Version None)
Quarter: 2004Q2

REPORT INFORMATION
  Report Type: 
  Country: None (occurrence: None)
  Receive Date: 20040427
  Receipt Date: 20040415
  Transmission Date: 20050107
  Serious: Yes (Other)
  Sender: FDA-Public Use
  Company Number: DE-BRISTOL-MYERS SQUIBB COMPANY-12568945

PATIENT
  Age: 53 Year
  Sex: Male

DRUGS (1)
  1. APROVEL TABS [Suspect]
     Route: 048

REACTIONS (3)
  - ANGIONEUROTIC OEDEMA [None]
  - HYPOAESTHESIA ORAL [None]
  - SPEECH DISORDER [None]
